FAERS Safety Report 9643370 (Version 1)
Quarter: 2013Q4

REPORT INFORMATION
  Report Type: Report from Study
  Country: CA (occurrence: CA)
  Receive Date: 20131024
  Receipt Date: 20131024
  Transmission Date: 20140711
  Serious: Yes (Hospitalization)
  Sender: FDA-Public Use
  Company Number: CA-ROCHE-1292243

PATIENT
  Age: 62 Year
  Sex: Female

DRUGS (9)
  1. TRASTUZUMAB [Suspect]
     Indication: PRODUCT USED FOR UNKNOWN INDICATION
     Route: 042
  2. CARBOPLATIN [Suspect]
     Indication: PRODUCT USED FOR UNKNOWN INDICATION
     Route: 042
  3. DOCETAXEL [Suspect]
     Indication: PRODUCT USED FOR UNKNOWN INDICATION
     Dosage: 160MG/ML MULITDOSE VIAL, 20MG/2ML SINGLE USE VIAL, 8 0MG/8ML MULTIDOSE VIAL
     Route: 042
  4. ACTONEL [Concomitant]
     Route: 065
  5. HYDROCHLOROTHIAZIDE [Concomitant]
     Route: 065
  6. IMOVANE [Concomitant]
     Route: 065
  7. LOMOTIL (CANADA) [Concomitant]
     Route: 065
  8. METOCLOPRAMIDE [Concomitant]
  9. POLYSPORIN (CANADA) [Concomitant]

REACTIONS (1)
  - Small intestinal obstruction [Recovered/Resolved]
